FAERS Safety Report 13726053 (Version 1)
Quarter: 2017Q3

REPORT INFORMATION
  Report Type: Spontaneous
  Country: US (occurrence: US)
  Receive Date: 20170707
  Receipt Date: 20170707
  Transmission Date: 20171127
  Serious: No
  Sender: FDA-Public Use
  Company Number: None

PATIENT
  Age: 32 Year
  Sex: Male
  Weight: 69.75 kg

DRUGS (5)
  1. LAMICTAL [Concomitant]
     Active Substance: LAMOTRIGINE
  2. PRAZOSIN. [Concomitant]
     Active Substance: PRAZOSIN
  3. DESVENLAFAXINE ER 100 MG [Suspect]
     Active Substance: DESVENLAFAXINE SUCCINATE
     Indication: DEPRESSION
     Dosage: ?          OTHER STRENGTH:MG;QUANTITY:1 TABLET(S);?
     Route: 048
     Dates: start: 20170703
  4. AMATIZA [Concomitant]
  5. PRISTIQ (GENERIC) [Concomitant]

REACTIONS (5)
  - Product substitution issue [None]
  - Malabsorption [None]
  - Diarrhoea [None]
  - Withdrawal syndrome [None]
  - Medication residue present [None]

NARRATIVE: CASE EVENT DATE: 20170706
